FAERS Safety Report 10232479 (Version 1)
Quarter: 2014Q2

REPORT INFORMATION
  Report Type: Spontaneous
  Country: US (occurrence: US)
  Receive Date: 20140612
  Receipt Date: 20140612
  Transmission Date: 20141212
  Serious: Yes (Death, Hospitalization)
  Sender: FDA-Public Use
  Company Number: US-JNJFOC-20140606478

PATIENT
  Age: 59 Year
  Sex: Male

DRUGS (8)
  1. REMICADE [Suspect]
     Indication: CROHN^S DISEASE
     Route: 042
     Dates: start: 20140401
  2. REMICADE [Suspect]
     Indication: CROHN^S DISEASE
     Route: 042
     Dates: start: 20131218
  3. KLONOPIN [Concomitant]
     Route: 065
  4. IBUPROFEN [Concomitant]
     Route: 065
  5. LISINOPRIL [Concomitant]
     Route: 065
  6. LOTRISONE [Concomitant]
     Route: 065
  7. OMEPRAZOLE [Concomitant]
     Route: 065
  8. TRAMADOL [Concomitant]
     Route: 065

REACTIONS (6)
  - Death [Fatal]
  - Sepsis [Unknown]
  - Feeling abnormal [Unknown]
  - Eating disorder [Unknown]
  - Hypersomnia [Unknown]
  - Drug ineffective [Unknown]
